APPROVED DRUG PRODUCT: RESCRIPTOR
Active Ingredient: DELAVIRDINE MESYLATE
Strength: 200MG
Dosage Form/Route: TABLET;ORAL
Application: N020705 | Product #002
Applicant: VIIV HEALTHCARE CO
Approved: Jul 14, 1999 | RLD: Yes | RS: No | Type: DISCN